FAERS Safety Report 13011745 (Version 2)
Quarter: 2016Q4

REPORT INFORMATION
  Report Type: Report from Study
  Country: US (occurrence: US)
  Receive Date: 20161209
  Receipt Date: 20161230
  Transmission Date: 20170207
  Serious: Yes (Other)
  Sender: FDA-Public Use
  Company Number: US-AMGEN-USASL2016172350

PATIENT
  Age: 76 Year
  Sex: Female
  Weight: 74.38 kg

DRUGS (18)
  1. REPATHA [Suspect]
     Active Substance: EVOLOCUMAB
     Indication: HYPERLIPIDAEMIA
  2. ASPIRIN. [Concomitant]
     Active Substance: ASPIRIN
     Dosage: 81 MG, UNK
     Route: 048
     Dates: start: 20121128
  3. ESTER C [Concomitant]
     Dosage: 1 UNK, QD
     Route: 048
     Dates: start: 20121022
  4. ZETIA [Concomitant]
     Active Substance: EZETIMIBE
  5. REPATHA [Suspect]
     Active Substance: EVOLOCUMAB
     Indication: DRUG INTOLERANCE
     Dosage: 140 MG/ML, Q2WK
     Route: 065
     Dates: start: 20151119
  6. DYAZIDE [Concomitant]
     Active Substance: HYDROCHLOROTHIAZIDE\TRIAMTERENE
     Dosage: 37.5-25 MG, QD
     Dates: start: 20141114
  7. XARELTO [Concomitant]
     Active Substance: RIVAROXABAN
     Dosage: 20 MG, UNK
     Route: 048
  8. LIVALO [Concomitant]
     Active Substance: PITAVASTATIN CALCIUM
     Dosage: 2 MG, QHS
     Dates: start: 20161215
  9. ELIQUIS [Concomitant]
     Active Substance: APIXABAN
     Dosage: 5 MG, BID
     Route: 048
     Dates: start: 20161019
  10. PROBIOTIC [Concomitant]
     Active Substance: PROBIOTICS NOS
     Dosage: 1 UNK, QD
     Dates: start: 20141215
  11. LANSOPRAZOLE. [Concomitant]
     Active Substance: LANSOPRAZOLE
     Dosage: 30 MG, QD
     Route: 048
     Dates: start: 20140213
  12. CELEBREX [Concomitant]
     Active Substance: CELECOXIB
     Dosage: 100 MG, QD
     Dates: start: 20150113
  13. BENADRYL [Concomitant]
     Active Substance: DIPHENHYDRAMINE HYDROCHLORIDE
     Dosage: 50 MG, QD
     Route: 048
     Dates: start: 20140213
  14. NITROSTAT [Concomitant]
     Active Substance: NITROGLYCERIN
     Dosage: 0.4 MG, UNK
     Route: 060
     Dates: start: 20131014
  15. TYLENOL [Concomitant]
     Active Substance: ACETAMINOPHEN
     Dosage: 2 UNK, QHS
     Route: 048
     Dates: start: 20121022
  16. DAILY VITAMINS [Concomitant]
     Dosage: 1 UNK, QD
     Route: 048
     Dates: start: 20121022
  17. COQ [Concomitant]
     Dosage: 1 UNK, UNK
  18. FLUOXETINE [Concomitant]
     Active Substance: FLUOXETINE HYDROCHLORIDE
     Dosage: 40 UNK, QD
     Route: 048
     Dates: start: 20121022

REACTIONS (10)
  - Muscular weakness [Unknown]
  - Weight decreased [Unknown]
  - Nausea [Unknown]
  - Back pain [Unknown]
  - Muscle spasms [Unknown]
  - Transient ischaemic attack [Not Recovered/Not Resolved]
  - Atrial fibrillation [Unknown]
  - Cough [Unknown]
  - Vomiting [Unknown]
  - Dyspnoea [Unknown]

NARRATIVE: CASE EVENT DATE: 20160908
